FAERS Safety Report 16884927 (Version 2)
Quarter: 2019Q4

REPORT INFORMATION
  Report Type: Report from Study
  Country: US (occurrence: US)
  Receive Date: 20191004
  Receipt Date: 20191004
  Transmission Date: 20200122
  Serious: Yes (Other)
  Sender: FDA-Public Use
  Company Number: US-JNJFOC-20191000076

PATIENT

DRUGS (2)
  1. HALOPERIDOL. [Suspect]
     Active Substance: HALOPERIDOL
     Indication: SCHIZOPHRENIA
     Route: 065
  2. BLONANSERIN [Suspect]
     Active Substance: BLONANSERIN
     Indication: SCHIZOPHRENIA
     Route: 065

REACTIONS (47)
  - Gamma-glutamyltransferase increased [Unknown]
  - Headache [Unknown]
  - Head discomfort [Unknown]
  - Dizziness [Unknown]
  - Tachycardia [Unknown]
  - Diarrhoea [Unknown]
  - Musculoskeletal stiffness [Unknown]
  - Depression [Unknown]
  - Feeling hot [Unknown]
  - Constipation [Unknown]
  - Weight decreased [Unknown]
  - Blood prolactin increased [Unknown]
  - Suicide attempt [Unknown]
  - Dystonia [Unknown]
  - Decreased appetite [Unknown]
  - Alanine aminotransferase increased [Unknown]
  - Blood triglycerides increased [Unknown]
  - Asthenia [Unknown]
  - Body temperature increased [Unknown]
  - Aspartate aminotransferase increased [Unknown]
  - Akathisia [Unknown]
  - Dyskinesia [Unknown]
  - Anxiety [Unknown]
  - Nausea [Unknown]
  - Menstrual disorder [Unknown]
  - Dyslalia [Unknown]
  - Dizziness postural [Unknown]
  - Vomiting [Unknown]
  - Salivary hypersecretion [Unknown]
  - Insomnia [Unknown]
  - Hypokinesia [Unknown]
  - Blood creatine phosphokinase increased [Unknown]
  - Nasopharyngitis [Unknown]
  - Agitation [Unknown]
  - Neuroleptic malignant syndrome [Unknown]
  - Gait disturbance [Unknown]
  - Tremor [Unknown]
  - Somnolence [Unknown]
  - Blood pressure decreased [Unknown]
  - Thirst [Unknown]
  - Bradykinesia [Unknown]
  - White blood cell count increased [Unknown]
  - Dysuria [Unknown]
  - Visual acuity reduced [Unknown]
  - Sedation [Unknown]
  - Irritability [Unknown]
  - Malaise [Unknown]
